FAERS Safety Report 24781822 (Version 2)
Quarter: 2025Q1

REPORT INFORMATION
  Report Type: Spontaneous
  Country: US (occurrence: US)
  Receive Date: 20241227
  Receipt Date: 20250305
  Transmission Date: 20250409
  Serious: No
  Sender: NOVARTIS
  Company Number: US-002147023-NVSC2024US245214

PATIENT
  Sex: Male

DRUGS (1)
  1. KESIMPTA [Suspect]
     Active Substance: OFATUMUMAB
     Indication: Product used for unknown indication
     Dosage: 20 MG, QMO
     Route: 065

REACTIONS (1)
  - Product storage error [Unknown]
